FAERS Safety Report 9160154 (Version 1)
Quarter: 2013Q1

REPORT INFORMATION
  Report Type: Report from Study
  Country: CA (occurrence: CA)
  Receive Date: 20130313
  Receipt Date: 20130313
  Transmission Date: 20140127
  Serious: Yes (Other)
  Sender: FDA-Public Use
  Company Number: CA-ROCHE-1198632

PATIENT
  Sex: 0

DRUGS (1)
  1. BEVACIZUMAB [Suspect]
     Indication: GLIOMA
     Route: 065

REACTIONS (5)
  - Pulmonary embolism [Unknown]
  - Fatigue [Unknown]
  - Thrombocytopenia [Unknown]
  - Bone marrow toxicity [Unknown]
  - Febrile neutropenia [Unknown]
